FAERS Safety Report 7607567-0 (Version None)
Quarter: 2011Q3

REPORT INFORMATION
  Report Type: 
  Country: None (occurrence: None)
  Receive Date: 20110713
  Receipt Date: 20110705
  Transmission Date: 20111222
  Serious: Yes (Hospitalization, Other)
  Sender: FDA-Public Use
  Company Number: PHHY2009DE03367

PATIENT
  Sex: Female
  Weight: 73 kg

DRUGS (7)
  1. ZOMETA [Suspect]
     Indication: BONE DISORDER
     Dosage: 4 MG, QMO
     Route: 042
     Dates: start: 20071218, end: 20080408
  2. IBANDRONATE SODIUM [Concomitant]
     Indication: MULTIPLE MYELOMA
     Dates: start: 20070308, end: 20071120
  3. MELPHALAN HYDROCHLORIDE [Concomitant]
     Dosage: 27 MG, UNK
     Route: 042
     Dates: start: 20080626, end: 20090106
  4. CEFIXIME [Concomitant]
     Indication: INFECTION
     Dosage: 400 MG, UNK
     Dates: start: 20080815, end: 20080822
  5. ZOMETA [Suspect]
     Dosage: 4 MG, QMO
     Route: 042
     Dates: end: 20080409
  6. PREDNISOLONE [Concomitant]
     Dates: start: 20080626, end: 20090106
  7. IBANDRONATE SODIUM [Concomitant]
     Dates: start: 20090126

REACTIONS (4)
  - JAW FRACTURE [None]
  - ANAEMIA [None]
  - OSTEONECROSIS OF JAW [None]
  - BONE FISSURE [None]
